FAERS Safety Report 14458748 (Version 2)
Quarter: 2018Q2

REPORT INFORMATION
  Report Type: Spontaneous
  Country: DE (occurrence: DE)
  Receive Date: 20180130
  Receipt Date: 20180530
  Transmission Date: 20180711
  Serious: Yes (Disabling)
  Sender: FDA-Public Use
  Company Number: DE-MYLANLABS-2018M1005188

PATIENT
  Age: 81 Year
  Sex: Male
  Weight: 73 kg

DRUGS (2)
  1. LEVOFLOXACIN. [Suspect]
     Active Substance: LEVOFLOXACIN
     Indication: BRONCHITIS
     Dosage: UNK
     Route: 048
     Dates: start: 20150303, end: 20150309
  2. PREDNISOLON                        /00016201/ [Concomitant]
     Active Substance: PREDNISOLONE
     Indication: PULMONARY FIBROSIS
     Dosage: LAUFEND
     Route: 048

REACTIONS (5)
  - Bedridden [Unknown]
  - Pain in extremity [Unknown]
  - Inflammation [Unknown]
  - Tendon rupture [Unknown]
  - Walking disability [Unknown]

NARRATIVE: CASE EVENT DATE: 201503
